FAERS Safety Report 12154500 (Version 1)
Quarter: 2016Q1

REPORT INFORMATION
  Report Type: Spontaneous
  Country: US (occurrence: None)
  Receive Date: 20160304
  Receipt Date: 20160304
  Transmission Date: 20160526
  Serious: No
  Sender: FDA-Public Use
  Company Number: None

PATIENT
  Age: 44 Year
  Sex: Female

DRUGS (1)
  1. HUMIRA [Suspect]
     Active Substance: ADALIMUMAB
     Dosage: 40 MG, Q14D, SC
     Route: 058
     Dates: start: 20160216

REACTIONS (4)
  - Migraine [None]
  - Nausea [None]
  - Thirst [None]
  - Hot flush [None]
